FAERS Safety Report 9376408 (Version 2)
Quarter: 2013Q3

REPORT INFORMATION
  Report Type: Spontaneous
  Country: US (occurrence: US)
  Receive Date: 20130701
  Receipt Date: 20130814
  Transmission Date: 20140515
  Serious: No
  Sender: FDA-Public Use
  Company Number: US-JNJFOC-20130610569

PATIENT
  Sex: Male

DRUGS (6)
  1. INVEGA SUSTENNA [Suspect]
     Indication: GALACTORRHOEA
     Route: 030
     Dates: start: 20110516, end: 201110
  2. INVEGA SUSTENNA [Suspect]
     Indication: GALACTORRHOEA
     Route: 030
     Dates: start: 20120413, end: 20130501
  3. INVEGA SUSTENNA [Suspect]
     Indication: GYNAECOMASTIA
     Route: 030
     Dates: start: 20110516, end: 201110
  4. INVEGA SUSTENNA [Suspect]
     Indication: GYNAECOMASTIA
     Route: 030
     Dates: start: 20120413, end: 20130501
  5. INVEGA SUSTENNA [Suspect]
     Indication: SCHIZOPHRENIA
     Route: 030
     Dates: start: 20120413, end: 20130501
  6. INVEGA SUSTENNA [Suspect]
     Indication: SCHIZOPHRENIA
     Route: 030
     Dates: start: 20110516, end: 201110

REACTIONS (3)
  - Gynaecomastia [Unknown]
  - Galactorrhoea [Unknown]
  - Off label use [Unknown]
